FAERS Safety Report 21784594 (Version 3)
Quarter: 2023Q1

REPORT INFORMATION
  Report Type: Spontaneous
  Country: IN (occurrence: IN)
  Receive Date: 20221227
  Receipt Date: 20230126
  Transmission Date: 20230418
  Serious: Yes (Other)
  Sender: FDA-Public Use
  Company Number: IN-PFIZER INC-202200527918

PATIENT
  Age: 61 Year
  Sex: Female
  Weight: 59.9 kg

DRUGS (7)
  1. PALBOCICLIB [Suspect]
     Active Substance: PALBOCICLIB
     Indication: Breast cancer
     Dosage: 125 MG, DAILY X 21 DAYS, ONE WEEK GAP
     Route: 048
     Dates: start: 20211001
  2. LETROZOLE [Concomitant]
     Active Substance: LETROZOLE
     Dosage: 2.5 MG, 1X/DAY (ONCE DAILY)
  3. ACETAMINOPHEN [Concomitant]
     Active Substance: ACETAMINOPHEN
     Dosage: 1 STAT (IMMEDIATELY)
  4. SHELCAL [CALCIUM CARBONATE;COLECALCIFEROL] [Concomitant]
     Dosage: 500 MG, DAILY (1-0-1) AFTER FOOD
  5. ZOMETA [Concomitant]
     Active Substance: ZOLEDRONIC ACID
     Dosage: 4 MG OVER 15 MINS (ONCE A MONTH X 6 MONTHS)
  6. ZOMETA [Concomitant]
     Active Substance: ZOLEDRONIC ACID
     Dosage: 4 MG OVER 15 MINS
  7. FULVESTRANT [Concomitant]
     Active Substance: FULVESTRANT
     Dosage: BOTH GLUTEAL REGION, AND THEN MONTHLY ONCE
     Route: 030
     Dates: start: 20221118

REACTIONS (13)
  - Enterocutaneous fistula [Unknown]
  - Body mass index increased [Unknown]
  - Breast disorder [Unknown]
  - Heart rate increased [Unknown]
  - Weight fluctuation [Unknown]
  - Haemoglobin decreased [Unknown]
  - Neutrophil percentage decreased [Unknown]
  - Ulcer [Unknown]
  - Neoplasm progression [Unknown]
  - Weight decreased [Unknown]
  - White blood cell count decreased [Unknown]
  - Platelet count decreased [Unknown]
  - Lymphadenopathy [Unknown]

NARRATIVE: CASE EVENT DATE: 20220422
